FAERS Safety Report 24754264 (Version 1)
Quarter: 2024Q4

REPORT INFORMATION
  Report Type: Report from Study
  Country: US (occurrence: US)
  Receive Date: 20241219
  Receipt Date: 20241219
  Transmission Date: 20250115
  Serious: Yes (Other)
  Sender: ABBVIE
  Company Number: US-ABBVIE-6028962

PATIENT
  Age: 64 Year
  Sex: Male

DRUGS (1)
  1. VENCLEXTA [Suspect]
     Active Substance: VENETOCLAX
     Indication: B-cell small lymphocytic lymphoma
     Dosage: LAST ADMIN DATE: 2024
     Route: 048
     Dates: start: 20240725

REACTIONS (4)
  - Neoplasm malignant [Unknown]
  - Kidney infection [Recovering/Resolving]
  - Gastric infection [Unknown]
  - White blood cell count decreased [Recovering/Resolving]

NARRATIVE: CASE EVENT DATE: 20240101
